FAERS Safety Report 24034890 (Version 1)
Quarter: 2024Q3

REPORT INFORMATION
  Report Type: Spontaneous
  Country: FR (occurrence: FR)
  Receive Date: 20240701
  Receipt Date: 20240701
  Transmission Date: 20241017
  Serious: Yes (Other)
  Sender: REGENERON
  Company Number: None

PATIENT
  Age: 48 Year
  Sex: Male

DRUGS (1)
  1. PRALUENT [Suspect]
     Active Substance: ALIROCUMAB
     Indication: Acute coronary syndrome
     Dosage: 4 INJECTIONS AU TOTAL 150MG,Q15D
     Route: 058
     Dates: start: 20240320, end: 20240520

REACTIONS (1)
  - Gout [Not Recovered/Not Resolved]

NARRATIVE: CASE EVENT DATE: 20240601
